FAERS Safety Report 5947386-4 (Version None)
Quarter: 2008Q4

REPORT INFORMATION
  Report Type: 
  Country: None (occurrence: None)
  Receive Date: 20081110
  Receipt Date: 20081029
  Transmission Date: 20090506
  Serious: Yes (Other)
  Sender: FDA-Public Use
  Company Number: FR-PFIZER INC-2008091828

PATIENT
  Sex: Male

DRUGS (1)
  1. VFEND [Suspect]
     Indication: BONE LESION
     Dates: start: 20080902

REACTIONS (1)
  - BONE LESION [None]
